FAERS Safety Report 7998427-4 (Version None)
Quarter: 2011Q4

REPORT INFORMATION
  Report Type: 
  Country: None (occurrence: None)
  Receive Date: 20111221
  Receipt Date: 20111016
  Transmission Date: 20120403
  Serious: No
  Sender: FDA-Public Use
  Company Number: US-GLAXOSMITHKLINE-A0949379A

PATIENT
  Sex: Male

DRUGS (2)
  1. AVAPRO [Concomitant]
  2. LOVAZA [Suspect]
     Indication: PRODUCT USED FOR UNKNOWN INDICATION
     Route: 065
     Dates: start: 20080101

REACTIONS (2)
  - BLOOD PRESSURE NORMAL [None]
  - THERAPEUTIC RESPONSE UNEXPECTED [None]
